FAERS Safety Report 4378255-1 (Version None)
Quarter: 2004Q2

REPORT INFORMATION
  Report Type: 
  Country: None (occurrence: None)
  Receive Date: 20040609
  Receipt Date: 20040525
  Transmission Date: 20050107
  Serious: Yes (Life-Threatening, Hospitalization, Other)
  Sender: FDA-Public Use
  Company Number: USA040568432

PATIENT
  Age: 47 Year
  Sex: Male
  Weight: 79 kg

DRUGS (3)
  1. HUMALOG [Suspect]
     Indication: DIABETES MELLITUS
     Dates: start: 20000101
  2. INSULIN [Suspect]
     Indication: DIABETES MELLITUS
     Dates: start: 19720101, end: 20000101
  3. LANTUS [Concomitant]

REACTIONS (12)
  - AMNESIA [None]
  - AORTIC ANEURYSM [None]
  - ARTERIOVENOUS FISTULA SITE COMPLICATION [None]
  - CARDIAC ARREST [None]
  - CORONARY ARTERY OCCLUSION [None]
  - DIABETES MELLITUS INADEQUATE CONTROL [None]
  - DIALYSIS [None]
  - KIDNEY TRANSPLANT REJECTION [None]
  - LIVER DISORDER [None]
  - LOSS OF CONSCIOUSNESS [None]
  - RENAL FAILURE [None]
  - ROAD TRAFFIC ACCIDENT [None]
